FAERS Safety Report 12921827 (Version 1)
Quarter: 2016Q4

REPORT INFORMATION
  Report Type: Spontaneous
  Country: JP (occurrence: JP)
  Receive Date: 20161108
  Receipt Date: 20161108
  Transmission Date: 20170207
  Serious: No
  Sender: FDA-Public Use
  Company Number: JP-ELI_LILLY_AND_COMPANY-JP201611001595

PATIENT
  Age: 45 Year

DRUGS (3)
  1. CYMBALTA [Suspect]
     Active Substance: DULOXETINE HYDROCHLORIDE
     Indication: PRODUCT USED FOR UNKNOWN INDICATION
     Dosage: 20 MG, QD
     Route: 048
     Dates: start: 20160921, end: 20161012
  2. REFLEX                             /01293201/ [Concomitant]
     Active Substance: MIRTAZAPINE
     Dosage: UNK
     Route: 048
  3. CYMBALTA [Suspect]
     Active Substance: DULOXETINE HYDROCHLORIDE
     Dosage: 40 MG, QD
     Route: 048
     Dates: start: 20161013

REACTIONS (4)
  - Alanine aminotransferase increased [Unknown]
  - Hyperhidrosis [Recovered/Resolved]
  - Drug ineffective [Unknown]
  - Abdominal discomfort [Recovered/Resolved]
